FAERS Safety Report 7033348-5 (Version None)
Quarter: 2010Q4

REPORT INFORMATION
  Report Type: 
  Country: None (occurrence: None)
  Receive Date: 20101007
  Receipt Date: 20100305
  Transmission Date: 20110411
  Serious: No
  Sender: FDA-Public Use
  Company Number: US-TYCO HEALTHCARE/MALLINCKRODT-T201000832

PATIENT

DRUGS (1)
  1. CONRAY 400 [Suspect]
     Dosage: UNK

REACTIONS (1)
  - ACCIDENTAL EXPOSURE [None]
